FAERS Safety Report 17197600 (Version 3)
Quarter: 2019Q4

REPORT INFORMATION
  Report Type: Spontaneous
  Country: US (occurrence: US)
  Receive Date: 20191224
  Receipt Date: 20191227
  Transmission Date: 20200122
  Serious: Yes (Other)
  Sender: FDA-Public Use
  Company Number: US-TEVA-2019-US-1157228

PATIENT
  Sex: Female

DRUGS (1)
  1. COPAXONE [Suspect]
     Active Substance: GLATIRAMER ACETATE
     Indication: MULTIPLE SCLEROSIS
     Route: 065
     Dates: start: 20191012

REACTIONS (8)
  - Burning sensation [Unknown]
  - Cognitive disorder [Not Recovered/Not Resolved]
  - Migraine [Not Recovered/Not Resolved]
  - Drug ineffective [Unknown]
  - Aphasia [Not Recovered/Not Resolved]
  - Dizziness [Unknown]
  - Multiple sclerosis relapse [Unknown]
  - Headache [Unknown]
